FAERS Safety Report 17691905 (Version 3)
Quarter: 2020Q3

REPORT INFORMATION
  Report Type: Spontaneous
  Country: US (occurrence: US)
  Receive Date: 20200422
  Receipt Date: 20200709
  Transmission Date: 20201102
  Serious: Yes (Hospitalization)
  Sender: FDA-Public Use
  Company Number: US-CADILA HEALTHCARE LIMITED-US-ZYDUS-049660

PATIENT

DRUGS (9)
  1. METOPROLOL. [Concomitant]
     Active Substance: METOPROLOL
     Indication: PRODUCT USED FOR UNKNOWN INDICATION
     Dosage: UNK
     Route: 065
  2. BOSENTAN 62.5 MG TABLETS [Suspect]
     Active Substance: BOSENTAN
     Dosage: 62.5 MILLIGRAM, BID
     Route: 048
     Dates: start: 201912
  3. BOSENTAN 62.5 MG TABLETS [Suspect]
     Active Substance: BOSENTAN
     Indication: PULMONARY ARTERIAL HYPERTENSION
     Dosage: 62.5 MILLIGRAM, BID
     Route: 048
     Dates: start: 201912
  4. MYCOPHENOLATE [Concomitant]
     Active Substance: MYCOPHENOLIC ACID
     Indication: PRODUCT USED FOR UNKNOWN INDICATION
     Dosage: UNK
     Route: 065
  5. HYDROCHLOROTHIAZIDE. [Concomitant]
     Active Substance: HYDROCHLOROTHIAZIDE
     Indication: PRODUCT USED FOR UNKNOWN INDICATION
     Dosage: UNK
     Route: 065
  6. PREDNISONE. [Concomitant]
     Active Substance: PREDNISONE
     Indication: PRODUCT USED FOR UNKNOWN INDICATION
     Dosage: UNK
     Route: 065
  7. ADCIRCA [Concomitant]
     Active Substance: TADALAFIL
     Indication: PULMONARY ARTERIAL HYPERTENSION
     Dosage: UNK
     Route: 065
  8. BOSENTAN 62.5 MG TABLETS [Suspect]
     Active Substance: BOSENTAN
     Dosage: 62.5 MILLIGRAM, BID
     Route: 048
     Dates: start: 201912
  9. ELIQUIS [Concomitant]
     Active Substance: APIXABAN
     Indication: PRODUCT USED FOR UNKNOWN INDICATION
     Dosage: UNK
     Route: 065

REACTIONS (15)
  - Taste disorder [Unknown]
  - Headache [Not Recovered/Not Resolved]
  - Nausea [Not Recovered/Not Resolved]
  - Arthralgia [Unknown]
  - Musculoskeletal pain [Not Recovered/Not Resolved]
  - Cardiac flutter [Recovered/Resolved]
  - Dyspepsia [Unknown]
  - Pain [Not Recovered/Not Resolved]
  - Eructation [Unknown]
  - Pulmonary oedema [Recovered/Resolved]
  - Abdominal pain [Not Recovered/Not Resolved]
  - Product dose omission issue [Recovered/Resolved]
  - Musculoskeletal stiffness [Unknown]
  - Myalgia [Unknown]
  - Breath odour [Unknown]

NARRATIVE: CASE EVENT DATE: 202001
